FAERS Safety Report 23962368 (Version 9)
Quarter: 2025Q1

REPORT INFORMATION
  Report Type: Spontaneous
  Country: CA (occurrence: CA)
  Receive Date: 20240611
  Receipt Date: 20250319
  Transmission Date: 20250408
  Serious: Yes (Other)
  Sender: PFIZER
  Company Number: CA-PFIZER INC-202400190175

PATIENT
  Age: 76 Year
  Sex: Female

DRUGS (23)
  1. ABRILADA [Suspect]
     Active Substance: ADALIMUMAB-AFZB
     Indication: Ankylosing spondylitis
     Route: 058
     Dates: start: 20240524
  2. ABRILADA [Suspect]
     Active Substance: ADALIMUMAB-AFZB
     Route: 058
     Dates: start: 20240607
  3. ABRILADA [Suspect]
     Active Substance: ADALIMUMAB-AFZB
     Route: 058
     Dates: start: 20240815
  4. ABRILADA [Suspect]
     Active Substance: ADALIMUMAB-AFZB
     Route: 058
     Dates: start: 20240829
  5. ABRILADA [Suspect]
     Active Substance: ADALIMUMAB-AFZB
     Route: 058
     Dates: start: 20241004
  6. ABRILADA [Suspect]
     Active Substance: ADALIMUMAB-AFZB
     Route: 058
     Dates: start: 20241017
  7. ABRILADA [Suspect]
     Active Substance: ADALIMUMAB-AFZB
     Route: 058
     Dates: start: 20241212
  8. ABRILADA [Suspect]
     Active Substance: ADALIMUMAB-AFZB
     Dosage: 40 MG, WEEKLY, AFTER 2 WEEKS
     Route: 058
     Dates: start: 20241226
  9. ABRILADA [Suspect]
     Active Substance: ADALIMUMAB-AFZB
     Route: 058
     Dates: start: 20250109
  10. ABRILADA [Suspect]
     Active Substance: ADALIMUMAB-AFZB
     Dosage: 40 MG, WEEKLY (40 MG, 1 WEEK)
     Route: 058
     Dates: start: 20250116
  11. ABRILADA [Suspect]
     Active Substance: ADALIMUMAB-AFZB
     Dosage: 40 MG, WEEKLY (40 MG, 1 WEEK)
     Route: 058
     Dates: start: 20250227
  12. ALENDRONATE [Concomitant]
     Active Substance: ALENDRONATE SODIUM
  13. AMLODIPINE [Concomitant]
     Active Substance: AMLODIPINE BESYLATE
  14. ATORVASTATIN [Concomitant]
     Active Substance: ATORVASTATIN
  15. CITALOPRAM [Concomitant]
     Active Substance: CITALOPRAM
  16. DONEPEZIL [Concomitant]
     Active Substance: DONEPEZIL
  17. FENTANYL [Concomitant]
     Active Substance: FENTANYL
  18. GABAPENTIN [Concomitant]
     Active Substance: GABAPENTIN
  19. LAMOTRIGINE [Concomitant]
     Active Substance: LAMOTRIGINE
  20. LASIX [Concomitant]
     Active Substance: FUROSEMIDE
  21. LEVOTHYROXINE [Concomitant]
     Active Substance: LEVOTHYROXINE
  22. LOSEC [Concomitant]
     Active Substance: OMEPRAZOLE
  23. METOPROLOL [Concomitant]
     Active Substance: METOPROLOL

REACTIONS (11)
  - Spinal fracture [Unknown]
  - Pain [Unknown]
  - Condition aggravated [Unknown]
  - Fall [Unknown]
  - Pain in extremity [Not Recovered/Not Resolved]
  - Arthralgia [Not Recovered/Not Resolved]
  - Abdominal pain [Unknown]
  - Flank pain [Unknown]
  - Back pain [Unknown]
  - Off label use [Unknown]
  - Inappropriate schedule of product administration [Unknown]

NARRATIVE: CASE EVENT DATE: 20240101
